FAERS Safety Report 4510279-3 (Version None)
Quarter: 2004Q4

REPORT INFORMATION
  Report Type: 
  Country: None (occurrence: None)
  Receive Date: 20041122
  Receipt Date: 20041108
  Transmission Date: 20050328
  Serious: Yes (Other)
  Sender: FDA-Public Use
  Company Number: HQWYE334410NOV04

PATIENT

DRUGS (1)
  1. PROTONIX [Suspect]
     Dosage: 8 MG/HR DRIP, INTRAVENOUS
     Route: 042

REACTIONS (3)
  - THROMBOPHLEBITIS [None]
  - THROMBOSIS [None]
  - VASCULAR OCCLUSION [None]
